FAERS Safety Report 7018868-1 (Version None)
Quarter: 2010Q3

REPORT INFORMATION
  Report Type: 
  Country: None (occurrence: None)
  Receive Date: 20100928
  Receipt Date: 20100921
  Transmission Date: 20110219
  Serious: Yes (Death, Hospitalization, Other)
  Sender: FDA-Public Use
  Company Number: US-PFIZER INC-2010056013

PATIENT
  Sex: Male
  Weight: 138.3 kg

DRUGS (2)
  1. SUTENT [Suspect]
     Indication: RENAL CELL CARCINOMA
     Dosage: 50 MG, DAILY
     Dates: start: 20090601
  2. SUTENT [Suspect]
     Dosage: 12.5 MG, 3X/DAY
     Dates: start: 20100301

REACTIONS (2)
  - DEATH [None]
  - THROMBOSIS [None]
